FAERS Safety Report 4427509-9 (Version None)
Quarter: 2004Q3

REPORT INFORMATION
  Report Type: 
  Country: None (occurrence: None)
  Receive Date: 20040812
  Receipt Date: 20040730
  Transmission Date: 20050211
  Serious: Yes (Death)
  Sender: FDA-Public Use
  Company Number: 04H-062-0269120-00

PATIENT
  Age: 74 Year
  Sex: Female

DRUGS (2)
  1. HEPARIN SODIUM [Suspect]
     Indication: THROMBOSIS PROPHYLAXIS
     Dosage: 7500 IU, THREE TIMES A DAY, SUBCUTANEOUS, AFTER STOPPING MARCUMAR - POST-OP DAY 7
     Route: 058
  2. UFN [Concomitant]

REACTIONS (5)
  - ENDOTOXIC SHOCK [None]
  - HEPARIN-INDUCED THROMBOCYTOPENIA [None]
  - PERIPHERAL ISCHAEMIA [None]
  - REFUSAL OF TREATMENT BY PATIENT [None]
  - VASCULAR OCCLUSION [None]
